FAERS Safety Report 7787113-1 (Version None)
Quarter: 2011Q3

REPORT INFORMATION
  Report Type: 
  Country: None (occurrence: None)
  Receive Date: 20110929
  Receipt Date: 20110928
  Transmission Date: 20111222
  Serious: Yes (Other)
  Sender: FDA-Public Use
  Company Number: ES-ABBOTT-11P-144-0725954-00

PATIENT
  Age: 40 Year
  Sex: Male
  Weight: 95 kg

DRUGS (3)
  1. HUMIRA [Suspect]
     Indication: PSORIASIS
     Route: 058
     Dates: start: 20101105
  2. HUMIRA [Suspect]
  3. ENALAPRIL MALEATE [Concomitant]
     Indication: HYPERTENSION
     Route: 048

REACTIONS (5)
  - WHEEZING [None]
  - BRONCHOSPASM [None]
  - RESPIRATORY DISTRESS [None]
  - BRONCHITIS CHRONIC [None]
  - ODYNOPHAGIA [None]
